FAERS Safety Report 4984534-7 (Version None)
Quarter: 2006Q2

REPORT INFORMATION
  Report Type: 
  Country: None (occurrence: None)
  Receive Date: 20060421
  Receipt Date: 20060410
  Transmission Date: 20061013
  Serious: No
  Sender: FDA-Public Use
  Company Number: RS005924-AUS

PATIENT
  Sex: Female

DRUGS (1)
  1. RABEPRAZOLE SODIUM [Suspect]
     Dosage: SEE IMAGE
     Route: 048

REACTIONS (5)
  - CONTUSION [None]
  - COUGH [None]
  - HAEMATEMESIS [None]
  - HAEMOPTYSIS [None]
  - OEDEMA PERIPHERAL [None]
